FAERS Safety Report 17005224 (Version 1)
Quarter: 2019Q4

REPORT INFORMATION
  Report Type: Spontaneous
  Country: US (occurrence: US)
  Receive Date: 20190926
  Receipt Date: 20190926
  Transmission Date: 20200122
  Serious: No
  Sender: FDA-Public Use
  Company Number: None

PATIENT
  Age: 59 Year
  Sex: Female

DRUGS (1)
  1. CYCLOSPORINE CAP MD [Suspect]
     Active Substance: CYCLOSPORINE
     Indication: APLASTIC ANAEMIA
     Route: 048
     Dates: start: 201802

REACTIONS (3)
  - Therapy cessation [None]
  - Economic problem [None]
  - Product availability issue [None]

NARRATIVE: CASE EVENT DATE: 20190926
